FAERS Safety Report 22032336 (Version 2)
Quarter: 2023Q1

REPORT INFORMATION
  Report Type: Spontaneous
  Country: CA (occurrence: None)
  Receive Date: 20230224
  Receipt Date: 20230307
  Transmission Date: 20230418
  Serious: Yes (Other)
  Sender: FDA-Public Use
  Company Number: CA-PFIZER INC-202201364675

PATIENT
  Age: 60 Year
  Sex: Male

DRUGS (2)
  1. METHOTREXATE [Suspect]
     Active Substance: METHOTREXATE
     Indication: Product used for unknown indication
     Route: 065
     Dates: start: 20221102
  2. RUXIENCE [Concomitant]
     Active Substance: RITUXIMAB-PVVR
     Route: 065

REACTIONS (5)
  - Lower respiratory tract infection [Recovering/Resolving]
  - Localised infection [Unknown]
  - Rheumatoid nodule [Unknown]
  - Bursitis [Unknown]
  - Joint swelling [Unknown]

NARRATIVE: CASE EVENT DATE: 20230101
